FAERS Safety Report 19823776 (Version 1)
Quarter: 2021Q3

REPORT INFORMATION
  Report Type: Spontaneous
  Country: PL (occurrence: PL)
  Receive Date: 20210913
  Receipt Date: 20210913
  Transmission Date: 20211014
  Serious: Yes (Hospitalization, Other)
  Sender: FDA-Public Use
  Company Number: PL-MYLANLABS-2021M1049434

PATIENT
  Age: 65 Year
  Sex: Female

DRUGS (4)
  1. TELMISARTAN. [Suspect]
     Active Substance: TELMISARTAN
     Indication: SLEEP APNOEA SYNDROME
     Dosage: 160 MILLIGRAM, DAILY
     Route: 065
  2. METOPROLOL. [Suspect]
     Active Substance: METOPROLOL
     Indication: SLEEP APNOEA SYNDROME
     Dosage: 50 MILLIGRAM, DAILY, PROLOGEND RELEASE TABLET
     Route: 065
  3. TORASEMIDE [Suspect]
     Active Substance: TORSEMIDE
     Indication: SLEEP APNOEA SYNDROME
     Dosage: 5 MILLIGRAM, DAILY
     Route: 065
  4. POTASSIUM CHLORIDE. [Suspect]
     Active Substance: POTASSIUM CHLORIDE
     Indication: SLEEP APNOEA SYNDROME
     Dosage: 2 TABLETS OF 391 MG, ONCE A DAY
     Route: 065

REACTIONS (2)
  - Drug ineffective [Unknown]
  - Hypotension [Unknown]
